FAERS Safety Report 6245626-8 (Version None)
Quarter: 2009Q2

REPORT INFORMATION
  Report Type: 
  Country: None (occurrence: None)
  Receive Date: 20090625
  Receipt Date: 20090324
  Transmission Date: 20091009
  Serious: No
  Sender: FDA-Public Use
  Company Number: US-ASTRAZENECA-2002UW13983

PATIENT
  Age: 68 Year
  Sex: Male
  Weight: 113.4 kg

DRUGS (3)
  1. ZOLADEX [Suspect]
     Indication: PROSTATE CANCER
     Route: 058
     Dates: start: 20020304
  2. ZOLADEX [Suspect]
     Route: 058
     Dates: start: 20080306, end: 20080613
  3. LEVOXYL [Concomitant]
     Indication: HYPOTHYROIDISM

REACTIONS (3)
  - BLOOD TESTOSTERONE ABNORMAL [None]
  - FATIGUE [None]
  - WEIGHT INCREASED [None]
